FAERS Safety Report 10976849 (Version 2)
Quarter: 2015Q4

REPORT INFORMATION
  Report Type: Report from Study
  Country: BR (occurrence: BR)
  Receive Date: 20150401
  Receipt Date: 20151201
  Transmission Date: 20160304
  Serious: Yes (Hospitalization)
  Sender: FDA-Public Use
  Company Number: BR-ROCHE-1559412

PATIENT
  Sex: Female
  Weight: 70 kg

DRUGS (3)
  1. PIPERACILLIN [Concomitant]
     Active Substance: PIPERACILLIN
     Dosage: EVERY 6 HOURS
     Route: 042
  2. PULMOZYME [Suspect]
     Active Substance: DORNASE ALFA
     Indication: CYSTIC FIBROSIS
     Route: 065
     Dates: start: 20150226
  3. TOBRAMYCIN. [Concomitant]
     Active Substance: TOBRAMYCIN
     Route: 065
     Dates: start: 20150226

REACTIONS (1)
  - Bacterial infection [Not Recovered/Not Resolved]
